FAERS Safety Report 18039655 (Version 5)
Quarter: 2020Q3

REPORT INFORMATION
  Report Type: Report from Study
  Country: US (occurrence: US)
  Receive Date: 20200717
  Receipt Date: 20200820
  Transmission Date: 20201103
  Serious: Yes (Hospitalization, Other)
  Sender: FDA-Public Use
  Company Number: US-ACTELION-A-NJ2020-207104

PATIENT
  Sex: Female
  Weight: 54.42 kg

DRUGS (2)
  1. LETAIRIS [Concomitant]
     Active Substance: AMBRISENTAN
  2. VELETRI [Suspect]
     Active Substance: EPOPROSTENOL
     Indication: PULMONARY ARTERIAL HYPERTENSION
     Dosage: 24.85 NG/KG, PER MIN
     Route: 042

REACTIONS (5)
  - Pyrexia [Unknown]
  - Vascular device infection [Unknown]
  - COVID-19 [Unknown]
  - Decreased appetite [Unknown]
  - Asthenia [Unknown]
